FAERS Safety Report 8973622 (Version 1)
Quarter: 2012Q4

REPORT INFORMATION
  Report Type: 
  Country: US (occurrence: US)
  Receive Date: 20121218
  Receipt Date: 20121218
  Transmission Date: 20130627
  Serious: No
  Sender: FDA-Public Use
  Company Number: US-BRISTOL-MYERS SQUIBB COMPANY-16425902

PATIENT
  Age: 66 Year
  Sex: Female

DRUGS (5)
  1. ABILIFY [Suspect]
     Dates: start: 201010
  2. BUPROPION [Concomitant]
     Dosage: Bupropion XL
  3. CYMBALTA [Concomitant]
  4. LAMOTRIGINE [Concomitant]
  5. ALPRAZOLAM [Concomitant]

REACTIONS (2)
  - Tardive dyskinesia [Not Recovered/Not Resolved]
  - Tremor [Unknown]
